FAERS Safety Report 9282976 (Version 1)
Quarter: 2013Q2

REPORT INFORMATION
  Report Type: Spontaneous
  Country: US (occurrence: US)
  Receive Date: 20130510
  Receipt Date: 20130510
  Transmission Date: 20140414
  Serious: No
  Sender: FDA-Public Use
  Company Number: US-GLAXOSMITHKLINE-A0969669A

PATIENT
  Age: 42 Year
  Sex: Female
  Weight: 80 kg

DRUGS (6)
  1. TYKERB [Suspect]
     Indication: INFLAMMATORY CARCINOMA OF THE BREAST
     Dosage: 1TAB FIVE TIMES PER DAY
     Route: 048
     Dates: start: 20120221
  2. IXEMPRA [Concomitant]
  3. LAMICTAL [Concomitant]
     Route: 048
  4. PRILOSEC [Concomitant]
  5. ZOFRAN [Concomitant]
  6. COMPAZINE [Concomitant]

REACTIONS (3)
  - Diarrhoea [Recovering/Resolving]
  - Abdominal pain upper [Unknown]
  - Drug administration error [Unknown]
